FAERS Safety Report 11073814 (Version 1)
Quarter: 2015Q2

REPORT INFORMATION
  Report Type: Spontaneous
  Country: US (occurrence: US)
  Receive Date: 20150428
  Receipt Date: 20150428
  Transmission Date: 20150821
  Serious: Yes (Hospitalization)
  Sender: FDA-Public Use
  Company Number: US-ALLERGAN-1507459US

PATIENT
  Age: 51 Year
  Sex: Female

DRUGS (2)
  1. DICLOFENAC [Concomitant]
     Active Substance: DICLOFENAC
     Indication: INFLAMMATION
     Dosage: UNK
     Route: 048
  2. VANIQA [Suspect]
     Active Substance: EFLORNITHINE HYDROCHLORIDE
     Indication: HIRSUTISM
     Dosage: ONCE DAILY
     Route: 061
     Dates: start: 201502, end: 201502

REACTIONS (7)
  - Bipolar disorder [Unknown]
  - Delusional disorder, unspecified type [Recovered/Resolved]
  - Insomnia [Recovered/Resolved]
  - Sleep disorder [Recovered/Resolved with Sequelae]
  - Crying [Recovered/Resolved]
  - Hallucination [Recovered/Resolved]
  - Hallucination, visual [Recovered/Resolved]

NARRATIVE: CASE EVENT DATE: 201502
